APPROVED DRUG PRODUCT: DATSCAN
Active Ingredient: IOFLUPANE I-123
Strength: 5mCi/2.5ML (2mCi/ML)
Dosage Form/Route: SOLUTION;INTRAVENOUS
Application: N022454 | Product #001 | TE Code: AP
Applicant: GE HEALTHCARE INC
Approved: Jan 14, 2011 | RLD: Yes | RS: Yes | Type: RX